FAERS Safety Report 9120952 (Version 1)
Quarter: 2013Q1

REPORT INFORMATION
  Report Type: Spontaneous
  Country: ES (occurrence: ES)
  Receive Date: 20130226
  Receipt Date: 20130226
  Transmission Date: 20140127
  Serious: Yes (Other)
  Sender: FDA-Public Use
  Company Number: ES-GLAXOSMITHKLINE-B0870209A

PATIENT
  Sex: Female

DRUGS (3)
  1. ZOVICREM LABIAL [Suspect]
     Indication: ORAL HERPES
     Route: 061
  2. IBUPROFEN [Concomitant]
     Indication: COUGH
  3. ANTIBIOTICS [Concomitant]
     Indication: COUGH

REACTIONS (2)
  - Angioedema [Recovered/Resolved]
  - Drug hypersensitivity [Unknown]
